FAERS Safety Report 14655790 (Version 1)
Quarter: 2018Q1

REPORT INFORMATION
  Report Type: Spontaneous
  Country: NL (occurrence: NL)
  Receive Date: 20180319
  Receipt Date: 20180319
  Transmission Date: 20180509
  Serious: Yes (Death, Hospitalization, Other)
  Sender: FDA-Public Use
  Company Number: NL-IMPAX LABORATORIES, INC-2018-IPXL-00835

PATIENT
  Age: 72 Year
  Sex: Male

DRUGS (5)
  1. METFORMIN HYDROCHLORIDE ER [Suspect]
     Active Substance: METFORMIN HYDROCHLORIDE
     Indication: TYPE 2 DIABETES MELLITUS
     Dosage: 1000 MG, 3 /DAY
     Route: 065
  2. HYDROCHLOROTHIAZIDE. [Suspect]
     Active Substance: HYDROCHLOROTHIAZIDE
     Indication: PRODUCT USED FOR UNKNOWN INDICATION
     Dosage: UNK
     Route: 065
  3. ENALAPRIL [Suspect]
     Active Substance: ENALAPRIL
     Indication: PRODUCT USED FOR UNKNOWN INDICATION
     Dosage: UNK
     Route: 065
  4. SIMVASTATIN. [Suspect]
     Active Substance: SIMVASTATIN
     Indication: PRODUCT USED FOR UNKNOWN INDICATION
     Dosage: UNK
     Route: 065
  5. TOLBUTAMIDE. [Suspect]
     Active Substance: TOLBUTAMIDE
     Indication: PRODUCT USED FOR UNKNOWN INDICATION
     Dosage: UNK
     Route: 065

REACTIONS (10)
  - Respiratory distress [Fatal]
  - Coma [Fatal]
  - Lactic acidosis [Fatal]
  - Abdominal discomfort [Fatal]
  - Ileus [Fatal]
  - Haemodynamic instability [Fatal]
  - Renal failure [Fatal]
  - Device related sepsis [Fatal]
  - Pneumonia [Fatal]
  - Extremity necrosis [Fatal]

NARRATIVE: CASE EVENT DATE: 2007
